FAERS Safety Report 25366176 (Version 2)
Quarter: 2025Q3

REPORT INFORMATION
  Report Type: Report from Study
  Country: IN (occurrence: IN)
  Receive Date: 20250528
  Receipt Date: 20250809
  Transmission Date: 20251021
  Serious: Yes (Other)
  Sender: ALEXION PHARMACEUTICALS
  Company Number: IN-AstraZeneca-CH-00874397A

PATIENT
  Age: 61 Year
  Sex: Female
  Weight: 56 kg

DRUGS (3)
  1. OLAPARIB [Suspect]
     Active Substance: OLAPARIB
     Dates: start: 20241201
  2. ALPRAZOLAM [Concomitant]
     Active Substance: ALPRAZOLAM
     Route: 065
  3. LEVOTHYROXINE [Concomitant]
     Active Substance: LEVOTHYROXINE
     Route: 065

REACTIONS (4)
  - Red blood cell nucleated morphology present [Unknown]
  - Asthenia [Unknown]
  - Abdominal distension [Unknown]
  - Psychiatric symptom [Unknown]

NARRATIVE: CASE EVENT DATE: 20250521
